APPROVED DRUG PRODUCT: HYDROXYZINE HYDROCHLORIDE
Active Ingredient: HYDROXYZINE HYDROCHLORIDE
Strength: 25MG
Dosage Form/Route: TABLET;ORAL
Application: A207121 | Product #001 | TE Code: AB
Applicant: NUVO PHAMACEUTICALS INC
Approved: Mar 29, 2017 | RLD: No | RS: No | Type: RX